FAERS Safety Report 7988707-0 (Version None)
Quarter: 2011Q4

REPORT INFORMATION
  Report Type: 
  Country: None (occurrence: None)
  Receive Date: 20111218
  Receipt Date: 20111209
  Transmission Date: 20120403
  Serious: Yes (Death)
  Sender: FDA-Public Use
  Company Number: CA-ELI_LILLY_AND_COMPANY-CA201112003069

PATIENT
  Sex: Male

DRUGS (5)
  1. PHENERGAN [Concomitant]
     Dosage: 100 MG, EACH EVENING
  2. ZYPREXA [Suspect]
     Dosage: 20 MG, EACH EVENING
  3. CLOZARIL [Concomitant]
     Indication: SCHIZOPHRENIA
     Dosage: 700 MG, UNK
     Route: 048
     Dates: start: 19920330, end: 20110615
  4. INDERAL [Concomitant]
     Dosage: 40 MG, TID
  5. LIPITOR [Concomitant]
     Dosage: 10 MG, EACH EVENING

REACTIONS (1)
  - DEATH [None]
